FAERS Safety Report 7726293-0 (Version None)
Quarter: 2011Q3

REPORT INFORMATION
  Report Type: 
  Country: None (occurrence: None)
  Receive Date: 20110831
  Receipt Date: 20090728
  Transmission Date: 20111222
  Serious: Yes (Hospitalization, Other)
  Sender: FDA-Public Use
  Company Number: SIM_00094_2011

PATIENT
  Age: 9 Year
  Sex: Male

DRUGS (1)
  1. EARACHE RELIEF (HOMEOPATHIC) [Suspect]
     Indication: EAR PAIN
     Dosage: (DF AURICULAR (OTIC)), 1 DF 1X INTRADERMAL)
     Route: 023
     Dates: start: 20090728, end: 20090728

REACTIONS (1)
  - ANAPHYLACTIC SHOCK [None]
